FAERS Safety Report 8840151 (Version 1)
Quarter: 2012Q4

REPORT INFORMATION
  Report Type: 
  Country: US (occurrence: US)
  Receive Date: 20121015
  Receipt Date: 20121015
  Transmission Date: 20130627
  Serious: No
  Sender: FDA-Public Use
  Company Number: US-PFIZER INC-2012255080

PATIENT
  Age: 45 Year
  Sex: Female
  Weight: 67.12 kg

DRUGS (6)
  1. PRISTIQ [Suspect]
     Indication: ANXIETY
     Dosage: 50 mg, daily
     Route: 048
     Dates: start: 20120929
  2. PRISTIQ [Suspect]
     Indication: DEPRESSION
  3. CELEXA [Suspect]
     Indication: PREMENSTRUAL SYNDROME
     Dosage: 40 mg, daily
     Route: 048
  4. CELEXA [Suspect]
     Indication: DEPRESSION
     Dosage: 20 mg, daily
     Route: 048
     Dates: start: 2012, end: 201210
  5. BENICAR [Concomitant]
     Indication: HYPERTENSION
     Dosage: UNK
  6. LIVALO [Concomitant]
     Indication: BLOOD CHOLESTEROL INCREASED
     Dosage: UNK

REACTIONS (2)
  - Agitation [Not Recovered/Not Resolved]
  - Anxiety [Not Recovered/Not Resolved]
